FAERS Safety Report 5683951-X (Version None)
Quarter: 2008Q1

REPORT INFORMATION
  Report Type: 
  Country: None (occurrence: None)
  Receive Date: 20080328
  Receipt Date: 20080320
  Transmission Date: 20080703
  Serious: Yes (Hospitalization, Other)
  Sender: FDA-Public Use
  Company Number: US-JNJFOC-20070102594

PATIENT
  Sex: Female
  Weight: 81.19 kg

DRUGS (18)
  1. REMICADE [Suspect]
     Route: 042
  2. REMICADE [Suspect]
     Route: 042
  3. REMICADE [Suspect]
     Route: 042
  4. REMICADE [Suspect]
     Indication: RHEUMATOID ARTHRITIS
     Route: 042
  5. LISINOPRIL [Concomitant]
     Indication: BLOOD PRESSURE
  6. ASCORBIC ACID [Concomitant]
  7. VITAMIN CAP [Concomitant]
  8. CALCIUM [Concomitant]
  9. HYDROCODONE BITARTRATE [Concomitant]
     Indication: PAIN
  10. ARAVA [Concomitant]
     Indication: RHEUMATOID ARTHRITIS
  11. IRON [Concomitant]
  12. VITAMIN B-12 [Concomitant]
  13. BENADRYL [Concomitant]
     Indication: PREMEDICATION
  14. SOLU-MEDROL [Concomitant]
     Indication: PREMEDICATION
     Route: 042
  15. METHOTREXATE [Concomitant]
     Indication: DRUG USE FOR UNKNOWN INDICATION
  16. CLOBETASOL PROPIONATE [Concomitant]
     Indication: DRUG USE FOR UNKNOWN INDICATION
  17. LEUCOVORIN CALCIUM [Concomitant]
     Indication: DRUG USE FOR UNKNOWN INDICATION
  18. TYLENOL (CAPLET) [Concomitant]

REACTIONS (4)
  - HAEMATURIA [None]
  - LUPUS-LIKE SYNDROME [None]
  - RAYNAUD'S PHENOMENON [None]
  - URTICARIA [None]
